FAERS Safety Report 8398728-4 (Version None)
Quarter: 2012Q2

REPORT INFORMATION
  Report Type: 
  Country: None (occurrence: None)
  Receive Date: 20120531
  Receipt Date: 20120525
  Transmission Date: 20120825
  Serious: Yes (Other)
  Sender: FDA-Public Use
  Company Number: PHEH2012US010871

PATIENT
  Sex: Female

DRUGS (2)
  1. DIOVAN [Suspect]
     Dosage: 160 MG, DAILY
  2. PRILSEC [Concomitant]

REACTIONS (4)
  - CEREBROVASCULAR ACCIDENT [None]
  - LIP NEOPLASM [None]
  - BLINDNESS UNILATERAL [None]
  - CHRONIC OBSTRUCTIVE PULMONARY DISEASE [None]
